FAERS Safety Report 14587596 (Version 1)
Quarter: 2018Q1

REPORT INFORMATION
  Report Type: Spontaneous
  Country: CA (occurrence: CA)
  Receive Date: 20180301
  Receipt Date: 20180301
  Transmission Date: 20180509
  Serious: Yes (Other)
  Sender: FDA-Public Use
  Company Number: CA-CELLTRION INC.-2018CA017716

PATIENT

DRUGS (2)
  1. INFLECTRA [Suspect]
     Active Substance: INFLIXIMAB-DYYB
     Dosage: 500 MG, CYCLIC, AT 0,2,6 WEEKS, THEN EVERY 8 WEEKS
     Route: 042
     Dates: start: 20180126
  2. INFLECTRA [Suspect]
     Active Substance: INFLIXIMAB-DYYB
     Indication: COLITIS ULCERATIVE
     Dosage: 500 MG, CYCLIC, AT 0,2,6 WEEKS, THEN EVERY 8 WEEKS
     Route: 042
     Dates: start: 20180109

REACTIONS (3)
  - Drug ineffective [Unknown]
  - Medication error [Unknown]
  - Rectal haemorrhage [Unknown]
